FAERS Safety Report 7493916-3 (Version None)
Quarter: 2011Q2

REPORT INFORMATION
  Report Type: 
  Country: None (occurrence: None)
  Receive Date: 20110513
  Receipt Date: 20110428
  Transmission Date: 20111010
  Serious: Yes (Life-Threatening)
  Sender: FDA-Public Use
  Company Number: AUR-APL-2011-01571

PATIENT
  Age: 83 Year
  Sex: Female

DRUGS (16)
  1. FRAGMIN [Concomitant]
  2. GAVISCON [Concomitant]
  3. BECLOMETHASONE [Concomitant]
  4. CARBOCISTEINE [Concomitant]
  5. CIPROFLOXACIN [Suspect]
     Indication: PNEUMONIA
     Dosage: 750MG-BID-ORAL
     Route: 048
     Dates: start: 20110407, end: 20110408
  6. AMIODARONE HCL [Concomitant]
  7. ASPIRIN [Concomitant]
  8. OMEPRAZOLE [Concomitant]
  9. AZTREONAM [Concomitant]
  10. DOPYRIDAMOLE [Concomitant]
  11. FERROUS SULFATE TAB [Concomitant]
  12. GALANTAMINE HYDROBROMIDE [Concomitant]
  13. ACETAMINOPHEN [Concomitant]
  14. IPRATROPIUM BROMIDE [Concomitant]
  15. FLUOXETINE HCL [Concomitant]
  16. ALBUTEROL [Concomitant]

REACTIONS (2)
  - HYPOGLYCAEMIA [None]
  - ELECTROCARDIOGRAM T WAVE INVERSION [None]
